FAERS Safety Report 15340765 (Version 3)
Quarter: 2020Q3

REPORT INFORMATION
  Report Type: Spontaneous
  Country: US (occurrence: US)
  Receive Date: 20180831
  Receipt Date: 20200707
  Transmission Date: 20201102
  Serious: No
  Sender: FDA-Public Use
  Company Number: US-SA-2018SA237782

PATIENT

DRUGS (1)
  1. PRALUENT [Suspect]
     Active Substance: ALIROCUMAB
     Indication: BLOOD CHOLESTEROL ABNORMAL
     Dosage: 75 MG, QOW
     Route: 058
     Dates: start: 2016

REACTIONS (5)
  - Injury associated with device [Unknown]
  - Skin haemorrhage [Unknown]
  - Product administered at inappropriate site [Unknown]
  - Injection site pain [Unknown]
  - Wrong technique in device usage process [Unknown]
